FAERS Safety Report 18756570 (Version 1)
Quarter: 2021Q1

REPORT INFORMATION
  Report Type: Report from Study
  Country: CA (occurrence: CA)
  Receive Date: 20210119
  Receipt Date: 20210119
  Transmission Date: 20210419
  Serious: Yes (Death, Other)
  Sender: FDA-Public Use
  Company Number: CA-ACCORD-214394

PATIENT
  Age: 73 Year
  Sex: Male
  Weight: 96 kg

DRUGS (17)
  1. ALENDRONIC ACID [Concomitant]
     Active Substance: ALENDRONIC ACID
     Indication: PROPHYLAXIS
  2. BACTRIM [Concomitant]
     Active Substance: SULFAMETHOXAZOLE\TRIMETHOPRIM
     Dosage: 3 EVERY 1 WEEKS
     Route: 065
  3. TYLENOL [Concomitant]
     Active Substance: ACETAMINOPHEN
  4. MYCOPHENOLIC ACID. [Suspect]
     Active Substance: MYCOPHENOLIC ACID
     Indication: SJOGREN^S SYNDROME
     Dosage: 2 EVERY 1 DAYS
     Route: 048
  5. AVAMYS [Concomitant]
     Active Substance: FLUTICASONE FUROATE
     Dosage: METERED DOSE
  6. HYDROCHLOROTHIAZIDE. [Concomitant]
     Active Substance: HYDROCHLOROTHIAZIDE
  7. CALCIUM [Concomitant]
     Active Substance: CALCIUM
  8. PANTOLOC [Concomitant]
     Active Substance: PANTOPRAZOLE SODIUM
  9. PREDNISONE. [Concomitant]
     Active Substance: PREDNISONE
     Dosage: 1 EVERY 1 DAYS
     Route: 065
  10. MYCOPHENOLIC ACID. [Suspect]
     Active Substance: MYCOPHENOLIC ACID
     Indication: SJOGREN^S SYNDROME
     Dosage: 2 EVERY 1 DAYS
     Route: 048
  11. PRAMIPEXOLE/PRAMIPEXOLE DIHYDROCHLORIDE [Concomitant]
     Active Substance: PRAMIPEXOLE DIHYDROCHLORIDE
  12. FLUOXETINE [Concomitant]
     Active Substance: FLUOXETINE HYDROCHLORIDE
  13. METHOTREXATE. [Concomitant]
     Active Substance: METHOTREXATE
  14. AMILORIDE [Concomitant]
     Active Substance: AMILORIDE
  15. CLONAZEPAM. [Concomitant]
     Active Substance: CLONAZEPAM
  16. FLUTICASONE. [Concomitant]
     Active Substance: FLUTICASONE
  17. INSULIN [Concomitant]
     Active Substance: INSULIN NOS

REACTIONS (19)
  - Diarrhoea [Recovered/Resolved]
  - Nausea [Recovered/Resolved]
  - Unevaluable event [Recovered/Resolved]
  - Intentional product use issue [Recovered/Resolved]
  - Disease progression [Recovered/Resolved]
  - Heart rate increased [Recovered/Resolved]
  - Herpes virus infection [Recovered/Resolved]
  - Bronchiectasis [Recovered/Resolved]
  - Dyspnoea [Recovered/Resolved]
  - Oxygen saturation decreased [Recovered/Resolved]
  - Cholestasis [Recovered/Resolved]
  - Pain in extremity [Recovered/Resolved]
  - Fatigue [Recovered/Resolved]
  - Lymphadenopathy [Recovered/Resolved]
  - Death [Fatal]
  - Blood glucose fluctuation [Recovered/Resolved]
  - Drug ineffective [Recovered/Resolved]
  - Granuloma [Recovered/Resolved]
  - Off label use [Recovered/Resolved]
